FAERS Safety Report 7577539-3 (Version None)
Quarter: 2011Q2

REPORT INFORMATION
  Report Type: 
  Country: None (occurrence: None)
  Receive Date: 20110628
  Receipt Date: 20110624
  Transmission Date: 20111010
  Serious: Yes (Hospitalization)
  Sender: FDA-Public Use
  Company Number: US-BRISTOL-MYERS SQUIBB COMPANY-15718224

PATIENT
  Age: 59 Year
  Sex: Female

DRUGS (1)
  1. IPILIMUMAB [Suspect]
     Indication: MALIGNANT MELANOMA
     Dosage: ALSO 222MG
     Route: 042
     Dates: start: 20110405, end: 20110609

REACTIONS (2)
  - SPINAL CORD COMPRESSION [None]
  - PYREXIA [None]
